FAERS Safety Report 11552813 (Version 1)
Quarter: 2015Q3

REPORT INFORMATION
  Report Type: Spontaneous
  Country: US (occurrence: US)
  Receive Date: 20150925
  Receipt Date: 20150925
  Transmission Date: 20151125
  Serious: No
  Sender: FDA-Public Use
  Company Number: US-PFIZER INC-2015309474

PATIENT
  Age: 48 Year
  Sex: Female

DRUGS (1)
  1. NEURONTIN [Suspect]
     Active Substance: GABAPENTIN
     Indication: SCIATICA
     Dosage: 600 MG, 3X/DAY (300 MG CAPSULE/ 2 CAPSULES 3 TIMES DAILY)
     Route: 048
     Dates: start: 20150716

REACTIONS (1)
  - Product use issue [Unknown]
